FAERS Safety Report 6819233-X (Version None)
Quarter: 2010Q3

REPORT INFORMATION
  Report Type: 
  Country: None (occurrence: None)
  Receive Date: 20100707
  Receipt Date: 20100701
  Transmission Date: 20110219
  Serious: Yes (Other)
  Sender: FDA-Public Use
  Company Number: US-ASTRAZENECA-2007UW25224

PATIENT
  Age: 18108 Day
  Sex: Female
  Weight: 92.5 kg

DRUGS (20)
  1. SEROQUEL [Suspect]
     Indication: INSOMNIA
     Dosage: 100MG - 600MG
     Route: 048
     Dates: start: 20060401, end: 20070401
  2. SEROQUEL [Suspect]
     Indication: ANXIETY
     Dosage: 100MG - 600MG
     Route: 048
     Dates: start: 20060401, end: 20070401
  3. SEROQUEL [Suspect]
     Indication: DEPRESSION
     Dosage: 100MG - 600MG
     Route: 048
     Dates: start: 20060401, end: 20070401
  4. SEROQUEL [Suspect]
     Indication: SLEEP DISORDER
     Dosage: 100MG - 600MG
     Route: 048
     Dates: start: 20060401, end: 20070401
  5. SEROQUEL [Suspect]
     Route: 048
     Dates: start: 20060426
  6. SEROQUEL [Suspect]
     Route: 048
     Dates: start: 20060426
  7. SEROQUEL [Suspect]
     Route: 048
     Dates: start: 20060426
  8. SEROQUEL [Suspect]
     Route: 048
     Dates: start: 20060426
  9. DICYCLOMINE [Concomitant]
     Dates: start: 20060426
  10. SINGULAIR [Concomitant]
     Dates: start: 20060426
  11. PREVACID [Concomitant]
     Dates: start: 20060426
  12. NABUMETONE [Concomitant]
     Route: 048
     Dates: start: 20060426
  13. NAPROXEN [Concomitant]
     Dates: start: 20070516
  14. PROTONIX [Concomitant]
     Dates: start: 20070905
  15. LIPITOR [Concomitant]
     Indication: HYPERLIPIDAEMIA
     Route: 048
     Dates: start: 20070905
  16. LASIX [Concomitant]
     Dates: start: 20070905
  17. DIFLUCAN [Concomitant]
     Dates: start: 20080319
  18. RISPERDAL [Concomitant]
     Indication: SLEEP DISORDER
     Dates: start: 20060101
  19. RISPERDAL [Concomitant]
     Indication: ANXIETY
     Dates: start: 20060101
  20. ABILIFY [Concomitant]

REACTIONS (3)
  - DIABETIC COMPLICATION [None]
  - NEUROPATHY PERIPHERAL [None]
  - TYPE 2 DIABETES MELLITUS [None]
